FAERS Safety Report 21571733 (Version 1)
Quarter: 2022Q4

REPORT INFORMATION
  Report Type: Spontaneous
  Country: US (occurrence: US)
  Receive Date: 20221109
  Receipt Date: 20221109
  Transmission Date: 20230113
  Serious: Yes (Hospitalization, Other)
  Sender: FDA-Public Use
  Company Number: US-JUBILANT CADISTA PHARMACEUTICALS-2022JUB00418

PATIENT
  Age: 76 Year
  Sex: Male

DRUGS (13)
  1. CLONIDINE [Suspect]
     Active Substance: CLONIDINE
     Indication: Analgesic therapy
     Dosage: 0.1 MG, EVERY 8 HOURS
  2. CLONIDINE [Suspect]
     Active Substance: CLONIDINE
     Dosage: 0.2 MG, EVERY 8 HOURS
  3. OXYCODONE [Suspect]
     Active Substance: OXYCODONE
     Indication: Analgesic therapy
     Dosage: 10 MG EVERY 4 HOUR
     Route: 048
  4. DEXMEDETOMIDINE [Suspect]
     Active Substance: DEXMEDETOMIDINE
     Indication: Sedation
     Dosage: 1.4 UG/KG EVERY 1 HOUR, WEANN
  5. DEXMEDETOMIDINE [Suspect]
     Active Substance: DEXMEDETOMIDINE
     Dosage: CONTINUOUS
  6. FENTANYL [Suspect]
     Active Substance: FENTANYL
     Indication: Analgesic therapy
     Dosage: CONTINUOUS
  7. CASSIA ACUTIFOLIA [Concomitant]
  8. POLYETHYLENE GLYCOLS [Concomitant]
     Active Substance: POLYETHYLENE GLYCOLS
  9. ACETAMINOPHEN [Concomitant]
     Active Substance: ACETAMINOPHEN
     Indication: Analgesic therapy
     Dosage: UNK, AS NEEDED
  10. DOCUSATE [Concomitant]
     Active Substance: DOCUSATE
  11. GABAPENTIN [Concomitant]
     Active Substance: GABAPENTIN
     Indication: Analgesic therapy
     Dosage: 100 MG, EVERY 8 HOURS
  12. PROPOFOL [Concomitant]
     Active Substance: PROPOFOL
     Indication: Sedation
     Dosage: CONTINUOUS
  13. BISACODYL [Concomitant]
     Active Substance: BISACODYL

REACTIONS (1)
  - Intestinal pseudo-obstruction [Recovered/Resolved]
